FAERS Safety Report 7785088-2 (Version None)
Quarter: 2011Q3

REPORT INFORMATION
  Report Type: 
  Country: None (occurrence: None)
  Receive Date: 20110929
  Receipt Date: 20110919
  Transmission Date: 20111222
  Serious: No
  Sender: FDA-Public Use
  Company Number: US-BIOGENIDEC-2010BI020862

PATIENT
  Age: 49 Year
  Sex: Female

DRUGS (1)
  1. TYSABRI [Suspect]
     Indication: MULTIPLE SCLEROSIS
     Route: 042
     Dates: start: 20100604

REACTIONS (12)
  - TREMOR [None]
  - MUSCLE SPASTICITY [None]
  - ERYTHEMA [None]
  - FLUSHING [None]
  - PAIN IN EXTREMITY [None]
  - COORDINATION ABNORMAL [None]
  - EAR PAIN [None]
  - OEDEMA PERIPHERAL [None]
  - FALL [None]
  - ARTHRALGIA [None]
  - DRUG INEFFECTIVE [None]
  - LIGAMENT SPRAIN [None]
